FAERS Safety Report 7099828-1 (Version None)
Quarter: 2010Q4

REPORT INFORMATION
  Report Type: 
  Country: None (occurrence: None)
  Receive Date: 20101112
  Receipt Date: 20101101
  Transmission Date: 20110411
  Serious: Yes (Other)
  Sender: FDA-Public Use
  Company Number: US-RB-008635-07

PATIENT
  Age: 36 Year
  Sex: Female

DRUGS (1)
  1. BUPRENORPHINE HCL AND NALOXONE HCL [Suspect]
     Indication: DRUG THERAPY
     Dosage: DOSE UNKNOWN
     Route: 065
     Dates: start: 20070801

REACTIONS (2)
  - ABORTION SPONTANEOUS [None]
  - DRUG EXPOSURE DURING PREGNANCY [None]
